FAERS Safety Report 12184453 (Version 1)
Quarter: 2016Q1

REPORT INFORMATION
  Report Type: Spontaneous
  Country: IT (occurrence: IT)
  Receive Date: 20160316
  Receipt Date: 20160316
  Transmission Date: 20160526
  Serious: Yes (Other)
  Sender: FDA-Public Use
  Company Number: IT-EISAI MEDICAL RESEARCH-EC-2016-015272

PATIENT
  Age: 51 Year
  Sex: Female

DRUGS (4)
  1. ONDASETRONE HIKMA [Concomitant]
     Indication: PREMEDICATION
     Route: 042
     Dates: start: 20160121, end: 20160226
  2. PANTORC [Concomitant]
     Active Substance: PANTOPRAZOLE SODIUM
     Indication: PREMEDICATION
     Route: 042
     Dates: start: 20160121, end: 20160226
  3. HALAVEN [Suspect]
     Active Substance: ERIBULIN MESYLATE
     Indication: BREAST CANCER
     Route: 041
     Dates: start: 20160121, end: 20160226
  4. DEXAMETHASONE FOSFATO [Concomitant]
     Indication: PREMEDICATION
     Route: 042
     Dates: start: 20160121, end: 20160226

REACTIONS (2)
  - Leukopenia [Recovered/Resolved]
  - Asthenia [Recovered/Resolved]

NARRATIVE: CASE EVENT DATE: 20160212
